FAERS Safety Report 6397949-X (Version None)
Quarter: 2009Q4

REPORT INFORMATION
  Report Type: 
  Country: None (occurrence: None)
  Receive Date: 20091006
  Receipt Date: 20090928
  Transmission Date: 20100525
  Serious: Yes (Hospitalization, Other)
  Sender: FDA-Public Use
  Company Number: TPA2009A02321

PATIENT
  Age: 66 Year
  Sex: Female
  Weight: 68.856 kg

DRUGS (5)
  1. ACTOPLUS MET [Suspect]
     Indication: DIABETES MELLITUS
     Dosage: 15 MG/ 850 MG BID, PER ORAL
     Route: 048
     Dates: start: 20070812, end: 20090608
  2. RECLAST [Suspect]
     Indication: OSTEOPOROSIS
     Dosage: INTRAVENOUS
     Route: 042
     Dates: start: 20090626, end: 20090626
  3. METFORMIN HCL [Suspect]
     Dosage: 1000 MG, 2 IN 1 D, UNKNOWN 500 MG, 2 IN 1 D, PER ORAL
     Route: 048
  4. GLIMEPIRIDE [Concomitant]
  5. JANUVIA (ALL OTHER THERAPEUTIC PRODUCTS) [Concomitant]

REACTIONS (9)
  - APHASIA [None]
  - ASTHENIA [None]
  - BLOOD GLUCOSE INCREASED [None]
  - BONE DENSITY DECREASED [None]
  - DIARRHOEA [None]
  - MENTAL STATUS CHANGES [None]
  - PNEUMONIA [None]
  - PULMONARY OEDEMA [None]
  - TACHYCARDIA [None]
